FAERS Safety Report 20027949 (Version 1)
Quarter: 2021Q4

REPORT INFORMATION
  Report Type: Other
  Country: CA (occurrence: None)
  Receive Date: 20211103
  Receipt Date: 20211103
  Transmission Date: 20220303
  Serious: Yes (Other)
  Sender: FDA-Public Use
  Company Number: CA-ROCHE-1746944

PATIENT
  Sex: Female

DRUGS (19)
  1. RITUXAN [Suspect]
     Active Substance: RITUXIMAB
     Indication: Multiple sclerosis
     Dosage: LAST RITUXIMAB DOSE: 14/SEP/2016.
     Route: 042
     Dates: start: 20130115, end: 20201204
  2. RITUXAN [Suspect]
     Active Substance: RITUXIMAB
     Dosage: DAY 1 ONLY
     Route: 042
     Dates: start: 20210527
  3. ACETAMINOPHEN [Concomitant]
     Active Substance: ACETAMINOPHEN
     Route: 048
     Dates: start: 20130115
  4. ACETAMINOPHEN [Concomitant]
     Active Substance: ACETAMINOPHEN
     Route: 048
     Dates: start: 20181023
  5. DIPHENHYDRAMINE HYDROCHLORIDE [Concomitant]
     Active Substance: DIPHENHYDRAMINE HYDROCHLORIDE
     Route: 048
     Dates: start: 20130115, end: 20151217
  6. DIPHENHYDRAMINE HYDROCHLORIDE [Concomitant]
     Active Substance: DIPHENHYDRAMINE HYDROCHLORIDE
     Route: 048
  7. PREDNISONE [Concomitant]
     Active Substance: PREDNISONE
     Indication: Premedication
     Route: 048
     Dates: start: 20130115
  8. NITROFURANTOIN [Concomitant]
     Active Substance: NITROFURANTOIN
  9. AMITRIPTYLINE [Concomitant]
     Active Substance: AMITRIPTYLINE
  10. ADVIL [Concomitant]
     Active Substance: IBUPROFEN
  11. BACLOFEN [Concomitant]
     Active Substance: BACLOFEN
  12. OMEGA 3 [Concomitant]
     Active Substance: CAPSAICIN
  13. RAMIPRIL [Concomitant]
     Active Substance: RAMIPRIL
  14. MYRBETRIQ [Concomitant]
     Active Substance: MIRABEGRON
     Dosage: DAILY
  15. PREGABALIN [Concomitant]
     Active Substance: PREGABALIN
  16. LYRICA [Concomitant]
     Active Substance: PREGABALIN
  17. ALERTEC (CANADA) [Concomitant]
  18. SOLU-MEDROL [Concomitant]
     Active Substance: METHYLPREDNISOLONE SODIUM SUCCINATE
     Indication: Premedication
     Route: 042
  19. DALFAMPRIDINE [Concomitant]
     Active Substance: DALFAMPRIDINE

REACTIONS (7)
  - Pneumonia [Unknown]
  - Blood pressure diastolic decreased [Unknown]
  - Blood pressure diastolic decreased [Unknown]
  - Body temperature decreased [Unknown]
  - Cough [Not Recovered/Not Resolved]
  - Blood pressure fluctuation [Unknown]
  - Heart rate increased [Unknown]

NARRATIVE: CASE EVENT DATE: 20160101
